FAERS Safety Report 21651692 (Version 10)
Quarter: 2023Q2

REPORT INFORMATION
  Report Type: Spontaneous
  Country: FR (occurrence: None)
  Receive Date: 20221128
  Receipt Date: 20230412
  Transmission Date: 20230722
  Serious: Yes (Death, Other)
  Sender: FDA-Public Use
  Company Number: 2022A385852

PATIENT
  Age: 76 Year
  Sex: Male
  Weight: 60 kg

DRUGS (20)
  1. DAPAGLIFLOZIN [Suspect]
     Active Substance: DAPAGLIFLOZIN
     Indication: Diabetes mellitus
     Dosage: 1 DOSAGE FORM,EVERY DAY
     Route: 048
     Dates: end: 20221029
  2. RAMIPRIL [Suspect]
     Active Substance: RAMIPRIL
     Indication: Myocardial ischaemia
     Dosage: 1 DOSAGE FORM, EVERY DAY
     Route: 048
     Dates: end: 20221029
  3. CHOLECALCIFEROL [Suspect]
     Active Substance: CHOLECALCIFEROL
     Indication: Vitamin D deficiency
     Dosage: 50000 IU
     Route: 048
     Dates: end: 20221029
  4. CHOLECALCIFEROL [Suspect]
     Active Substance: CHOLECALCIFEROL
     Indication: Vitamin D deficiency
     Dosage: 1 DOSAGE FORM, Q2W (50000 UI, VIAL)1.0DF EVERY CYCLE
     Route: 048
  5. PLAVIX [Suspect]
     Active Substance: CLOPIDOGREL BISULFATE
     Indication: Myocardial ischaemia
     Dosage: 1 DOSAGE FORM,EVERY DAY
     Route: 048
     Dates: end: 20221029
  6. INSPRA [Suspect]
     Active Substance: EPLERENONE
     Indication: Hypertension
     Dosage: 1 DOSAGE FORM, EVERY DAY
     Route: 048
     Dates: end: 20221029
  7. DOLIPRANE [Suspect]
     Active Substance: ACETAMINOPHEN
     Indication: Pain
     Dosage: 4 DOSAGE FORM, EVERY DAY
     Route: 048
     Dates: start: 20221005, end: 20221028
  8. THIOCOLCHICOSIDE [Suspect]
     Active Substance: THIOCOLCHICOSIDE
     Indication: Arthralgia
     Dosage: 2 DOSAGE FORM, EVERY DAY
     Route: 048
     Dates: start: 20221026, end: 20221028
  9. TAHOR [Suspect]
     Active Substance: ATORVASTATIN CALCIUM
     Indication: Myocardial ischaemia
     Route: 048
     Dates: end: 20221029
  10. ALLOPURINOL [Suspect]
     Active Substance: ALLOPURINOL
     Indication: Product used for unknown indication
     Dosage: 1 DOSAGE FORM, EVERY DAY
     Route: 048
     Dates: end: 20221029
  11. FOLIC ACID [Suspect]
     Active Substance: FOLIC ACID
     Indication: Anaemia folate deficiency
     Dosage: 3 DOSAGE FORM, EVERY DAY
     Route: 048
     Dates: end: 20221029
  12. BISOPROLOL FUMARATE [Suspect]
     Active Substance: BISOPROLOL FUMARATE
     Indication: Myocardial ischaemia
     Dosage: 1 DOSAGE FORM, EVERY DAY
     Route: 048
     Dates: end: 20221029
  13. KETOPROFEN [Suspect]
     Active Substance: KETOPROFEN
     Indication: Pain
     Dosage: 4 DOSAGE FORM, EVERY DAY
     Route: 048
     Dates: start: 20221026, end: 20221028
  14. EPLERENONE [Suspect]
     Active Substance: EPLERENONE
     Indication: Hypertension
     Route: 048
     Dates: end: 20221029
  15. MONTELUKAST SODIUM [Suspect]
     Active Substance: MONTELUKAST SODIUM
     Indication: Hypertension
     Dosage: 1 DOSAGE FORM1.0DF UNKNOWN
     Route: 048
  16. ACETAMINOPHEN\BELLADONNA LEAF\CAFFEINE\OPIUM [Suspect]
     Active Substance: ACETAMINOPHEN\BELLADONNA LEAF\CAFFEINE\OPIUM
     Indication: Pain
     Dosage: UNK
     Route: 048
     Dates: start: 20221026, end: 20221028
  17. ASPIRIN\CLOPIDOGREL BISULFATE [Suspect]
     Active Substance: ASPIRIN\CLOPIDOGREL BISULFATE
     Indication: Myocardial ischaemia
     Dosage: 1 DOSAGE FORM,EVERY DAY
     Route: 048
     Dates: end: 20221029
  18. PANTOPRAZOLE [Concomitant]
     Active Substance: PANTOPRAZOLE
     Dosage: UNK
  19. FUROSEMIDE [Concomitant]
     Active Substance: FUROSEMIDE
  20. PANTO [Concomitant]

REACTIONS (1)
  - Gastrointestinal haemorrhage [Fatal]

NARRATIVE: CASE EVENT DATE: 20221029
